FAERS Safety Report 6137869-9 (Version None)
Quarter: 2009Q1

REPORT INFORMATION
  Report Type: 
  Country: None (occurrence: None)
  Receive Date: 20090331
  Receipt Date: 20090324
  Transmission Date: 20090719
  Serious: Yes (Life-Threatening, Hospitalization, Other)
  Sender: FDA-Public Use
  Company Number: PHHY2009DE11021

PATIENT
  Age: 77 Year
  Sex: Male
  Weight: 83 kg

DRUGS (13)
  1. BENAZEPRIL HYDROCHLORIDE [Suspect]
     Indication: HYPERTENSION
     Dosage: 1 DF (20 MG BENAZEPRIL/25 MG HYDROCHLOROTHIAZIDE)
     Route: 048
     Dates: start: 20080501, end: 20090130
  2. TORASEMIDE [Suspect]
     Indication: RENAL IMPAIRMENT
     Dosage: 20 MG, QD
     Route: 048
     Dates: start: 20090125
  3. ARCOXIA [Suspect]
     Indication: PAIN IN EXTREMITY
     Dosage: 90 MG, QD
     Route: 048
     Dates: start: 20090123, end: 20090130
  4. GABAPENTIN [Suspect]
     Indication: PERIPHERAL ARTERIAL OCCLUSIVE DISEASE
     Dosage: 300 MG, BID
     Route: 048
     Dates: start: 20090103, end: 20090130
  5. BELOC-ZOK [Suspect]
     Indication: HYPERTENSION
     Dosage: 47.5 MG, QD
     Route: 048
     Dates: start: 19950101, end: 20090130
  6. BENZBROMARONE [Suspect]
     Indication: GOUT
     Dosage: 100 MG, QD
     Route: 048
     Dates: start: 20090103, end: 20090130
  7. DIGITOXIN TAB [Suspect]
     Indication: ATRIAL FIBRILLATION
     Dosage: 0.07 MG, ONCE/SINGLE
     Route: 048
     Dates: start: 20070401, end: 20090129
  8. VEROSPIRON [Suspect]
     Indication: OEDEMA PERIPHERAL
     Dosage: 25 MG, QD
     Route: 048
     Dates: start: 20081201, end: 20090129
  9. XIPAMIDE [Suspect]
     Indication: HYPERTENSION
     Dosage: 40 MG, QD
     Route: 048
     Dates: start: 20081201, end: 20090129
  10. FALITHROM ^FAHLBERG^ [Concomitant]
     Indication: ATRIAL FIBRILLATION
     Dosage: 3 MG, ONCE/SINGLE
     Route: 048
     Dates: start: 19960101, end: 20090130
  11. LOVASTATIN [Concomitant]
     Indication: DYSLIPIDAEMIA
     Dosage: 20 MG, ONCE/SINGLE
     Route: 048
     Dates: start: 20070401, end: 20090129
  12. ALLOPURINOL [Concomitant]
     Dosage: UNK
     Dates: end: 20090130
  13. ALLOPURINOL [Concomitant]
     Dosage: UNK
     Dates: start: 20090212

REACTIONS (21)
  - ASTHENIA [None]
  - ATRIAL FIBRILLATION [None]
  - BENIGN PROSTATIC HYPERPLASIA [None]
  - BLOOD CREATININE INCREASED [None]
  - BLOOD POTASSIUM INCREASED [None]
  - BRADYCARDIA [None]
  - BUNDLE BRANCH BLOCK [None]
  - CARDIOVASCULAR INSUFFICIENCY [None]
  - CHOLELITHIASIS [None]
  - DEPRESSED LEVEL OF CONSCIOUSNESS [None]
  - DIALYSIS [None]
  - DIARRHOEA [None]
  - ELECTROCARDIOGRAM T WAVE INVERSION [None]
  - GENERAL PHYSICAL HEALTH DETERIORATION [None]
  - GOUT [None]
  - LEFT ATRIAL DILATATION [None]
  - PAIN IN EXTREMITY [None]
  - RENAL FAILURE ACUTE [None]
  - UNRESPONSIVE TO STIMULI [None]
  - VASCULAR INSUFFICIENCY [None]
  - VOMITING [None]
